FAERS Safety Report 5463533-5 (Version None)
Quarter: 2007Q3

REPORT INFORMATION
  Report Type: 
  Country: None (occurrence: None)
  Receive Date: 20070919
  Receipt Date: 20070905
  Transmission Date: 20080115
  Serious: No
  Sender: FDA-Public Use
  Company Number: 20074076

PATIENT
  Sex: Female

DRUGS (2)
  1. LIORESAL [Suspect]
     Indication: MUSCLE SPASTICITY
     Dosage: 219-250 MCG, DAILY, INTRATHECAL
     Route: 037
  2. ORAL BENADRYL [Concomitant]

REACTIONS (8)
  - APPLICATION SITE PRURITUS [None]
  - DRUG HYPERSENSITIVITY [None]
  - DYSURIA [None]
  - FEELING OF BODY TEMPERATURE CHANGE [None]
  - FORMICATION [None]
  - HYPERHIDROSIS [None]
  - MICTURITION URGENCY [None]
  - MUSCLE RIGIDITY [None]
